FAERS Safety Report 5772309-0 (Version None)
Quarter: 2008Q2

REPORT INFORMATION
  Report Type: 
  Country: None (occurrence: None)
  Receive Date: 20080611
  Receipt Date: 20080602
  Transmission Date: 20081010
  Serious: Yes (Other)
  Sender: FDA-Public Use
  Company Number: 100#08#2008-03013

PATIENT
  Age: 66 Year
  Sex: Male

DRUGS (3)
  1. OXALIPLATIN [Suspect]
     Indication: COLON CANCER STAGE IV
     Dosage: INTRAVENOUS
     Route: 042
  2. FLUOROURACIL [Suspect]
     Indication: COLON CANCER STAGE IV
     Dosage: INTRAVENOUS
     Route: 042
  3. LEUCOVORIN CALCIUM [Suspect]
     Indication: COLON CANCER STAGE IV
     Dosage: INTRAVENOUS
     Route: 042

REACTIONS (4)
  - DERMATITIS [None]
  - MALIGNANT NEOPLASM PROGRESSION [None]
  - METASTASES TO LUNG [None]
  - PSEUDOLYMPHOMA [None]
